FAERS Safety Report 23681520 (Version 1)
Quarter: 2024Q1

REPORT INFORMATION
  Report Type: Report from Study
  Country: US (occurrence: US)
  Receive Date: 20240328
  Receipt Date: 20240328
  Transmission Date: 20240410
  Serious: Yes (Hospitalization, Other)
  Sender: FDA-Public Use
  Company Number: US-ABBVIE-5688841

PATIENT
  Age: 79 Year
  Sex: Female

DRUGS (16)
  1. VENCLEXTA [Suspect]
     Active Substance: VENETOCLAX
     Indication: B-cell small lymphocytic lymphoma
     Dosage: 100 MG TABLET(S)?THEN, 100MG(1X100MG TAB) BY MOUTH DAILY WEEK 3.?FORM STRENGTH: 100 MILLIGRAM
     Route: 048
  2. VENCLEXTA [Suspect]
     Active Substance: VENETOCLAX
     Indication: B-cell small lymphocytic lymphoma
     Dosage: 10 MG TABLET(S)?TAKE 20MG(2X10MG TABS) BY MOUTH EVERY DAY ON WEEK 1.?FORM STRENGTH: 20 MILLIGRAM
     Route: 048
     Dates: start: 20211028
  3. VENCLEXTA [Suspect]
     Active Substance: VENETOCLAX
     Indication: B-cell small lymphocytic lymphoma
     Dosage: 50 MG TABLET(S)?THEN, 50MG(1X50MG TAB) DAILY BY MOUTH WEEK 2?FORM STRENGTH: 50 MILLIGRAM
     Route: 048
  4. VENCLEXTA [Suspect]
     Active Substance: VENETOCLAX
     Indication: B-cell small lymphocytic lymphoma
     Dosage: 100 MG TABLET(S)?THEN, 200MG(2X100MG TABS) DAILY WEEK 4.?FORM STRENGTH: 200 MILLIGRAM
     Route: 048
  5. VENCLEXTA [Suspect]
     Active Substance: VENETOCLAX
     Indication: B-cell small lymphocytic lymphoma
     Dosage: 100 MG TABLET(S)?TAKE 4 TABLET(S) BY MOUTH (400 MG) EVERY DAY?FORM STRENGTH: 400 MILLIGRAM
     Route: 048
  6. GAZYVA [Suspect]
     Active Substance: OBINUTUZUMAB
     Indication: Plasma cell myeloma
     Route: 065
  7. RITUXAN [Suspect]
     Active Substance: RITUXIMAB
     Indication: Plasma cell myeloma
     Dosage: LAST GIVEN -SEP-2023
     Route: 065
     Dates: start: 20101210
  8. IBRUTINIB [Concomitant]
     Active Substance: IBRUTINIB
     Indication: Product used for unknown indication
     Dosage: 420 MG TABLET
     Route: 048
  9. SYNTHROID [Concomitant]
     Active Substance: LEVOTHYROXINE SODIUM
     Indication: Product used for unknown indication
     Dosage: 75 MCG TABLET
     Route: 048
  10. LAMICTAL [Concomitant]
     Active Substance: LAMOTRIGINE
     Indication: Product used for unknown indication
     Dosage: 200 MG TABLET
     Route: 048
  11. PREDNISONE [Concomitant]
     Active Substance: PREDNISONE
     Indication: Product used for unknown indication
     Dosage: 20 MG TABLET
     Route: 048
  12. KEPPRA [Concomitant]
     Active Substance: LEVETIRACETAM
     Indication: Product used for unknown indication
     Dosage: 750 MG TABLET
     Route: 048
  13. NAMENDA [Concomitant]
     Active Substance: MEMANTINE HYDROCHLORIDE
     Indication: Product used for unknown indication
     Dosage: 10 MG TABLET
     Route: 048
  14. ROSUVASTATIN CALCIUM [Concomitant]
     Active Substance: ROSUVASTATIN CALCIUM
     Indication: Product used for unknown indication
     Dosage: 10 MG TABLET
     Route: 048
  15. COZAAR [Concomitant]
     Active Substance: LOSARTAN POTASSIUM
     Indication: Product used for unknown indication
     Dosage: 50 MG TABLET
     Route: 048
  16. ARICEPT [Concomitant]
     Active Substance: DONEPEZIL HYDROCHLORIDE
     Indication: Product used for unknown indication
     Dosage: 10 MG TABLET
     Route: 048

REACTIONS (29)
  - Dyspnoea [Unknown]
  - Nasal congestion [Unknown]
  - Richter^s syndrome [Unknown]
  - Effusion [Unknown]
  - Chronic lymphocytic leukaemia recurrent [Unknown]
  - Unevaluable event [Unknown]
  - Lymphocytosis [Unknown]
  - Post herpetic neuralgia [Unknown]
  - Pain [Unknown]
  - Back pain [Unknown]
  - Globulins decreased [Unknown]
  - Sepsis [Unknown]
  - Karyotype analysis abnormal [Unknown]
  - Night sweats [Unknown]
  - Lymphocyte count increased [Unknown]
  - Breast pain [Unknown]
  - Bone marrow reticulin fibrosis [Unknown]
  - Hypercalcaemia [Unknown]
  - Fatigue [Unknown]
  - Sensory disturbance [Unknown]
  - Movement disorder [Unknown]
  - Chills [Unknown]
  - Anaemia [Unknown]
  - Blood lactate dehydrogenase increased [Unknown]
  - Aspiration bone marrow abnormal [Unknown]
  - Cough [Unknown]
  - White blood cell count increased [Unknown]
  - Oropharyngeal pain [Unknown]
  - Axillary pain [Unknown]

NARRATIVE: CASE EVENT DATE: 20221128
